FAERS Safety Report 4490499-7 (Version None)
Quarter: 2004Q4

REPORT INFORMATION
  Report Type: 
  Country: None (occurrence: None)
  Receive Date: 20041102
  Receipt Date: 20041018
  Transmission Date: 20050328
  Serious: Yes (Disabling, Other)
  Sender: FDA-Public Use
  Company Number: PHBS2004IL13797

PATIENT
  Age: 35 Year
  Sex: Female
  Weight: 55 kg

DRUGS (2)
  1. TERONAC/SANOREX [Suspect]
     Indication: OBESITY
     Dosage: 1-1.5 MG/DAY
     Route: 048
     Dates: start: 20030501, end: 20040801
  2. HOMEOPATHIC PREPARATIONS [Concomitant]
     Dosage: BETWEEN 1 MG -1.5MG/DAY

REACTIONS (12)
  - ACTIVITIES OF DAILY LIVING IMPAIRED [None]
  - AMNESIA [None]
  - CONFUSIONAL STATE [None]
  - CRYING [None]
  - DEPRESSION [None]
  - DISORIENTATION [None]
  - DISTURBANCE IN ATTENTION [None]
  - DIZZINESS [None]
  - MOOD ALTERED [None]
  - NERVOUSNESS [None]
  - RESTLESSNESS [None]
  - SELF ESTEEM DECREASED [None]
